FAERS Safety Report 4336545-2 (Version None)
Quarter: 2004Q2

REPORT INFORMATION
  Report Type: 
  Country: None (occurrence: None)
  Receive Date: 20040407
  Receipt Date: 20040323
  Transmission Date: 20050107
  Serious: Yes (Hospitalization, Other)
  Sender: FDA-Public Use
  Company Number: USA-2003-0009612

PATIENT
  Age: 62 Year
  Sex: Male
  Weight: 90 kg

DRUGS (21)
  1. OXYCONTIN [Suspect]
     Indication: PAIN
     Dosage: SEE IMAGE
     Route: 048
  2. TOPROL-XL [Concomitant]
  3. ALBUTEROL [Concomitant]
  4. LISINOPRIL [Concomitant]
  5. PREVACID [Concomitant]
  6. LORTAB [Concomitant]
  7. ARTHROTEC [Concomitant]
  8. ZESTORETIC [Concomitant]
  9. PRILOSEC [Concomitant]
  10. ADVAIR DISKUS (SALMETEROL XINAFOATE, FLUTICASONE PROPIONATE) [Concomitant]
  11. FLOVENT [Concomitant]
  12. SEREVENT [Concomitant]
  13. DIAZEPAM [Concomitant]
  14. VICODIN [Concomitant]
  15. FOSAMAX [Concomitant]
  16. RISPERDAL [Concomitant]
  17. SULFAMETHOXAZOLE AND TRIMETHOPRIM [Concomitant]
  18. CLONAZEPAM [Concomitant]
  19. MAVIK [Concomitant]
  20. PREDNISONE [Concomitant]
  21. LIPITOR [Concomitant]

REACTIONS (30)
  - ABDOMINAL PAIN [None]
  - ANXIETY [None]
  - BACK PAIN [None]
  - BRONCHITIS [None]
  - CHEST PAIN [None]
  - CHRONIC OBSTRUCTIVE AIRWAYS DISEASE EXACERBATED [None]
  - CONDUCTION DISORDER [None]
  - CORONARY ARTERY DISEASE [None]
  - DEPRESSION [None]
  - DIZZINESS [None]
  - DRUG DEPENDENCE [None]
  - DRUG INEFFECTIVE [None]
  - DRUG WITHDRAWAL SYNDROME [None]
  - DYSPNOEA [None]
  - ELECTROCARDIOGRAM ST-T SEGMENT ABNORMAL [None]
  - EXCORIATION [None]
  - FALL [None]
  - HEADACHE [None]
  - HYPOAESTHESIA [None]
  - HYPOXIA [None]
  - LYMPHADENOPATHY MEDIASTINAL [None]
  - NAUSEA [None]
  - OEDEMA PERIPHERAL [None]
  - PAIN [None]
  - PLEURISY [None]
  - PLEURITIC PAIN [None]
  - PNEUMONIA [None]
  - SENSATION OF HEAVINESS [None]
  - SOMNOLENCE [None]
  - TREMOR [None]
